FAERS Safety Report 4784220-2 (Version None)
Quarter: 2005Q3

REPORT INFORMATION
  Report Type: 
  Country: None (occurrence: None)
  Receive Date: 20050928
  Receipt Date: 20050831
  Transmission Date: 20060218
  Serious: Yes (Hospitalization, Other)
  Sender: FDA-Public Use
  Company Number: 2005BI016368

PATIENT
  Age: 62 Year
  Sex: Female
  Weight: 58.0604 kg

DRUGS (1)
  1. AVONEX [Suspect]
     Indication: MULTIPLE SCLEROSIS
     Dosage: 30 UG; QW; IM
     Route: 030
     Dates: start: 20050823, end: 20050829

REACTIONS (4)
  - CARDIAC FAILURE CONGESTIVE [None]
  - CHILLS [None]
  - PAIN IN EXTREMITY [None]
  - WEIGHT INCREASED [None]
